FAERS Safety Report 24629566 (Version 2)
Quarter: 2025Q3

REPORT INFORMATION
  Report Type: Spontaneous
  Country: US (occurrence: US)
  Receive Date: 20241118
  Receipt Date: 20250802
  Transmission Date: 20251020
  Serious: Yes (Other)
  Sender: ALEXION PHARMACEUTICALS
  Company Number: US-AstraZeneca-CH-00725995A

PATIENT
  Sex: Female

DRUGS (1)
  1. FARXIGA [Suspect]
     Active Substance: DAPAGLIFLOZIN PROPANEDIOL

REACTIONS (6)
  - Product dose omission in error [Unknown]
  - Product storage error [Unknown]
  - Blood pressure increased [Unknown]
  - Product use issue [Unknown]
  - Drug ineffective [Unknown]
  - Blood glucose increased [Unknown]
